FAERS Safety Report 8600445-X (Version None)
Quarter: 2012Q3

REPORT INFORMATION
  Report Type: 
  Country: None (occurrence: None)
  Receive Date: 20120817
  Receipt Date: 20120809
  Transmission Date: 20120928
  Serious: Yes (Hospitalization)
  Sender: FDA-Public Use
  Company Number: US-BAYER-2011-028619

PATIENT
  Age: 26 Year
  Sex: Female
  Weight: 260 kg

DRUGS (11)
  1. TYLENOL COLD [Concomitant]
     Dosage: 30 CC, PRN
  2. YASMIN [Suspect]
     Dosage: UNK
     Dates: start: 20051001, end: 20060401
  3. PERCOCET [Concomitant]
  4. FLEXERIL [Concomitant]
  5. IBUPROFEN [Concomitant]
     Dosage: 800 MG, UNK
     Route: 048
  6. DAYQUIL [DEXTROMET HBR,GUAIF,PARACET,PSEUDOEPH HCL] [Concomitant]
     Dosage: 30 CC, PRN
     Route: 048
  7. DILAUDID [Concomitant]
  8. VICODIN [Concomitant]
     Dosage: UNK
     Dates: start: 20070413
  9. LOVENOX [Concomitant]
     Indication: PULMONARY EMBOLISM
     Dosage: 40 MG/24HR, UNK
     Route: 058
     Dates: start: 20070413
  10. PHENERGAN HCL [Concomitant]
  11. AZITHROMYCIN [Concomitant]
     Dosage: 250 MG, UNK
     Route: 048

REACTIONS (5)
  - PAIN [None]
  - EMOTIONAL DISTRESS [None]
  - ANXIETY [None]
  - INJURY [None]
  - PULMONARY EMBOLISM [None]
